FAERS Safety Report 4334315-2 (Version None)
Quarter: 2004Q2

REPORT INFORMATION
  Report Type: 
  Country: None (occurrence: None)
  Receive Date: 20040405
  Receipt Date: 20040319
  Transmission Date: 20050107
  Serious: Yes (Hospitalization)
  Sender: FDA-Public Use
  Company Number: WAES 0403USA02102

PATIENT
  Age: 70 Year
  Sex: Female

DRUGS (5)
  1. COZAAR [Suspect]
     Indication: HYPERTENSION
     Dosage: 50 MG/DAILY PO
     Route: 048
     Dates: start: 20011219, end: 20030408
  2. ASPIRIN ALUMINUM [Concomitant]
  3. DOXAZOSIN MESYLATE [Concomitant]
  4. ISOSORBIDE DINITRATE [Concomitant]
  5. TORESEMIDE [Concomitant]

REACTIONS (2)
  - CEREBRAL HAEMORRHAGE [None]
  - SCHIZOPHRENIA [None]
